FAERS Safety Report 23946412 (Version 1)
Quarter: 2024Q2

REPORT INFORMATION
  Report Type: Spontaneous
  Country: AU (occurrence: AU)
  Receive Date: 20240606
  Receipt Date: 20240606
  Transmission Date: 20240716
  Serious: Yes (Hospitalization, Other)
  Sender: FDA-Public Use
  Company Number: AU-MYLANLABS-2024M1050052

PATIENT
  Sex: Male

DRUGS (1)
  1. CLOZARIL [Suspect]
     Active Substance: CLOZAPINE
     Indication: Schizophrenia
     Dosage: 425 MILLIGRAM, QD (75 MILLIGRAM MORNING AND 350 MILLIGRAM NIGHT)
     Route: 048
     Dates: start: 20150820

REACTIONS (2)
  - Treatment noncompliance [Unknown]
  - Ejection fraction decreased [Unknown]
